FAERS Safety Report 16595174 (Version 2)
Quarter: 2020Q3

REPORT INFORMATION
  Report Type: Spontaneous
  Country: FR (occurrence: FR)
  Receive Date: 20190718
  Receipt Date: 20200824
  Transmission Date: 20201102
  Serious: Yes (Other)
  Sender: FDA-Public Use
  Company Number: PHHY2019FR164331

PATIENT
  Age: 46 Year
  Sex: Female

DRUGS (38)
  1. NIMBEX [Suspect]
     Active Substance: CISATRACURIUM BESYLATE
     Indication: SEDATION
     Dosage: 120 MG, QD
     Route: 042
     Dates: start: 20190509, end: 20190511
  2. TIORFAN [Suspect]
     Active Substance: RACECADOTRIL
     Indication: DIARRHOEA
     Dosage: 300 MG, QD
     Route: 048
     Dates: start: 20190510, end: 20190511
  3. VANCOMYCINE SANDOZ 1 G, POUDRE POUR SOLUTION POUR PERFUSION [Suspect]
     Active Substance: VANCOMYCIN
     Dosage: 1020 MG, Q24H
     Route: 042
     Dates: start: 20190511
  4. KETAMINE RENAUDIN [Suspect]
     Active Substance: KETAMINE
     Indication: ANAESTHESIA
     Dosage: 250 MG, TOTAL
     Route: 042
     Dates: start: 20190509, end: 20190509
  5. PANTOPRAZOLE SODIUM. [Suspect]
     Active Substance: PANTOPRAZOLE SODIUM
     Indication: GASTRIC MUCOSAL LESION
     Dosage: 80 MG, QD
     Route: 042
     Dates: start: 20190509, end: 20190520
  6. HYPNOVEL [Suspect]
     Active Substance: MIDAZOLAM
     Dosage: 50 MG, QD
     Route: 042
     Dates: start: 20190511
  7. CIFLOX [Suspect]
     Active Substance: CIPROFLOXACIN
     Indication: FEBRILE BONE MARROW APLASIA
     Dosage: 800 MG, QD
     Route: 042
     Dates: start: 20190507, end: 20190508
  8. PROPOFOL LIPURO [Suspect]
     Active Substance: PROPOFOL
     Indication: SEDATION
     Dosage: 1 G, QD
     Route: 042
     Dates: start: 20190512, end: 20190516
  9. LANSOPRAZOLE ARROW [Suspect]
     Active Substance: LANSOPRAZOLE
     Indication: PEPTIC ULCER
     Dosage: 60 MG, QD
     Route: 048
     Dates: start: 20190522, end: 20190603
  10. VANCOMYCINE SANDOZ 1 G, POUDRE POUR SOLUTION POUR PERFUSION [Suspect]
     Active Substance: VANCOMYCIN
     Indication: FEBRILE BONE MARROW APLASIA
     Dosage: 1020 MG, Q24H
     Route: 042
     Dates: start: 20190507, end: 20190511
  11. CIRCADIN [Suspect]
     Active Substance: MELATONIN
     Indication: INSOMNIA
     Dosage: 2 MG, QD
     Route: 048
     Dates: start: 20190522
  12. NOVORAPID [Suspect]
     Active Substance: INSULIN ASPART
     Indication: DIABETES MELLITUS
     Dosage: 25 IU, QD
     Route: 042
     Dates: start: 20190509, end: 20190521
  13. FLUCORTAC [Suspect]
     Active Substance: FLUDROCORTISONE ACETATE
     Indication: ADRENAL INSUFFICIENCY
     Dosage: 50 UG, QD
     Route: 048
     Dates: start: 20190509, end: 20190514
  14. ATARAX [Suspect]
     Active Substance: HYDROXYZINE HYDROCHLORIDE
     Indication: ANXIETY
     Dosage: 25 MG, QD
     Route: 048
     Dates: start: 20190530, end: 20190603
  15. PANTOPRAZOLE [Suspect]
     Active Substance: PANTOPRAZOLE
     Indication: PROPHYLAXIS AGAINST GASTROINTESTINAL ULCER
     Dosage: 80 MG, QD
     Route: 048
     Dates: start: 20190522
  16. TAZOCILLINE [Suspect]
     Active Substance: PIPERACILLIN SODIUM\TAZOBACTAM SODIUM
     Indication: FEBRILE BONE MARROW APLASIA
     Dosage: 12 G, QD
     Route: 042
     Dates: start: 20190507, end: 20190516
  17. LASILIX [Suspect]
     Active Substance: FUROSEMIDE
     Indication: OEDEMA
     Dosage: 80 MG, ONCE/SINGLE (TOTAL)
     Route: 042
     Dates: start: 20190518, end: 20190518
  18. LOVENOX [Suspect]
     Active Substance: ENOXAPARIN SODIUM
     Dosage: 4000 IU, QD
     Route: 058
     Dates: start: 20190603
  19. FLUCORTAC [Suspect]
     Active Substance: FLUDROCORTISONE ACETATE
     Dosage: 50 UG, QD
     Route: 048
     Dates: start: 20190514
  20. TIORFAN [Suspect]
     Active Substance: RACECADOTRIL
     Dosage: UNK (SI BESOIN)
     Route: 048
     Dates: start: 20190522
  21. HEPARINA SODICA PANPHARMA [Suspect]
     Active Substance: HEPARIN SODIUM
     Indication: THROMBOSIS
     Dosage: PUIS 10000 UI/JOUR
     Route: 042
     Dates: start: 20190510, end: 20190514
  22. HYPNOVEL [Suspect]
     Active Substance: MIDAZOLAM
     Indication: SEDATION
     Dosage: 50 MG, QD
     Route: 042
     Dates: start: 20190509, end: 20190511
  23. SUFENTANIL [Suspect]
     Active Substance: SUFENTANIL
     Indication: SEDATION
     Dosage: 750 UG, QD
     Route: 042
     Dates: start: 20190509, end: 20190512
  24. ESMERON [Suspect]
     Active Substance: ROCURONIUM BROMIDE
     Indication: ENDOTRACHEAL INTUBATION
     Dosage: 80 MG, ONCE/SINGLE (TOTAL)
     Route: 042
     Dates: start: 20190509, end: 20190509
  25. ROVAMYCINE [Suspect]
     Active Substance: SPIRAMYCIN
     Indication: FEBRILE BONE MARROW APLASIA
     Dosage: 9 MIU, QD
     Route: 048
     Dates: start: 20190507, end: 20190516
  26. SPASFON (PHLOROGLUCINOL/TRIMETHYLPHLOROGLUCINOL) [Suspect]
     Active Substance: PHLOROGLUCINOL\1,3,5-TRIMETHOXYBENZENE
     Indication: PAIN
     Dosage: 1 DF, ONCE/SINGLE (UNE AMPOULE)
     Route: 042
     Dates: start: 20190509, end: 20190509
  27. LOVENOX [Suspect]
     Active Substance: ENOXAPARIN SODIUM
     Dosage: 4000 IU, QD
     Route: 058
     Dates: start: 20190522, end: 20190607
  28. SMECTA [Suspect]
     Active Substance: MONTMORILLONITE
     Indication: DIARRHOEA
     Dosage: 1 DF, PRN
     Route: 048
     Dates: start: 20190522, end: 20190603
  29. MORPHINE RENAUDIN [Suspect]
     Active Substance: MORPHINE
     Indication: PAIN
     Dosage: 6 MG, ONCE/SINGLE (TOTAL)
     Route: 042
     Dates: start: 20190518, end: 20190518
  30. SPECIAFOLDINE [Suspect]
     Active Substance: FOLIC ACID
     Indication: ANAEMIA
     Dosage: 5 MG, QD
     Route: 048
     Dates: start: 20190520
  31. EFFERALGAN [Suspect]
     Active Substance: ACETAMINOPHEN
     Indication: PYREXIA
     Dosage: 4 G, QD
     Route: 048
     Dates: start: 20190511, end: 20190522
  32. LOVENOX [Suspect]
     Active Substance: ENOXAPARIN SODIUM
     Indication: PROPHYLAXIS
     Dosage: 4000 IU, QD
     Route: 058
     Dates: start: 20190521, end: 20190603
  33. TIORFAN [Suspect]
     Active Substance: RACECADOTRIL
     Dosage: 300 MG, QD
     Route: 048
     Dates: start: 20190511
  34. PANTOPRAZOLE SODIUM. [Suspect]
     Active Substance: PANTOPRAZOLE SODIUM
     Dosage: 80 MG, QD
     Route: 042
     Dates: start: 20190520
  35. TAZOCILLINE [Suspect]
     Active Substance: PIPERACILLIN SODIUM\TAZOBACTAM SODIUM
     Dosage: 12 G, QD
     Route: 042
     Dates: start: 20190516
  36. NORADRENALIN [Suspect]
     Active Substance: NOREPINEPHRINE\NOREPINEPHRINE BITARTRATE
     Indication: HAEMODYNAMIC INSTABILITY
     Dosage: 24 MG, QD (PUIS 8 MG)
     Route: 042
     Dates: start: 20190509, end: 20190512
  37. PARACETAMOL B. BRAUN [Suspect]
     Active Substance: ACETAMINOPHEN
     Indication: PYREXIA
     Dosage: 4 G, QD
     Route: 042
     Dates: start: 20190509, end: 20190511
  38. DOLIPRANE [Suspect]
     Active Substance: ACETAMINOPHEN
     Indication: PYREXIA
     Dosage: 4 G, QD
     Route: 048
     Dates: start: 20190522

REACTIONS (1)
  - Rash maculo-papular [Recovered/Resolved]

NARRATIVE: CASE EVENT DATE: 20190528
